FAERS Safety Report 5451432-4 (Version None)
Quarter: 2007Q3

REPORT INFORMATION
  Report Type: 
  Country: None (occurrence: None)
  Receive Date: 20070913
  Receipt Date: 20070903
  Transmission Date: 20080115
  Serious: Yes (Hospitalization)
  Sender: FDA-Public Use
  Company Number: B0486771A

PATIENT
  Age: 86 Year
  Sex: Female

DRUGS (8)
  1. AUGMENTIN '125' [Suspect]
     Dosage: 1G THREE TIMES PER DAY
     Route: 048
     Dates: start: 20070608, end: 20070611
  2. PREVISCAN [Suspect]
     Route: 048
     Dates: end: 20070611
  3. COVERSYL [Concomitant]
     Route: 048
  4. DIAMICRON [Concomitant]
     Route: 048
  5. POTASSIUM CHLORIDE [Concomitant]
     Route: 048
  6. ACARBOSE [Concomitant]
     Route: 048
  7. ACETAMINOPHEN [Concomitant]
     Route: 048
  8. LASIX [Concomitant]
     Route: 065

REACTIONS (3)
  - DRUG INTERACTION [None]
  - INTERNATIONAL NORMALISED RATIO INCREASED [None]
  - PROTHROMBIN LEVEL DECREASED [None]
